FAERS Safety Report 16522250 (Version 1)
Quarter: 2019Q3

REPORT INFORMATION
  Report Type: Other
  Country: DE (occurrence: DE)
  Receive Date: 20190703
  Receipt Date: 20190703
  Transmission Date: 20191004
  Serious: No
  Sender: FDA-Public Use
  Company Number: DE-LUPIN PHARMACEUTICALS INC.-2018-06391

PATIENT
  Age: 74 Year
  Sex: Male
  Weight: 74.9 kg

DRUGS (1)
  1. SIMVASTATIN. [Suspect]
     Active Substance: SIMVASTATIN
     Indication: PRODUCT USED FOR UNKNOWN INDICATION
     Dosage: 30 MG, QD (30 MG MILLGRAM(S) EVERY DAYS)
     Route: 048
     Dates: start: 2008

REACTIONS (1)
  - Myalgia [Recovering/Resolving]
